FAERS Safety Report 12365011 (Version 1)
Quarter: 2016Q2

REPORT INFORMATION
  Report Type: Spontaneous
  Country: TR (occurrence: TR)
  Receive Date: 20160513
  Receipt Date: 20160513
  Transmission Date: 20160815
  Serious: Yes (Other)
  Sender: FDA-Public Use
  Company Number: TR-WATSON-2016-09733

PATIENT
  Sex: Male

DRUGS (1)
  1. TESTOSTERONE (UNKNOWN) [Suspect]
     Active Substance: TESTOSTERONE
     Dosage: TWO TIMES; GEL
     Route: 065

REACTIONS (1)
  - Peliosis hepatis [Unknown]
